FAERS Safety Report 4668955-8 (Version None)
Quarter: 2005Q2

REPORT INFORMATION
  Report Type: 
  Country: None (occurrence: None)
  Receive Date: 20050523
  Receipt Date: 20031112
  Transmission Date: 20051028
  Serious: Yes (Hospitalization)
  Sender: FDA-Public Use
  Company Number: FR-GLAXOSMITHKLINE-B0314722A

PATIENT
  Age: 64 Year
  Sex: Male

DRUGS (19)
  1. CLAMOXYL [Suspect]
     Route: 042
     Dates: start: 20030207, end: 20030226
  2. LASILIX [Suspect]
     Dosage: 20MG PER DAY
     Route: 048
     Dates: start: 20030208, end: 20030224
  3. VANCOMYCIN [Suspect]
     Dosage: 2G PER DAY
     Route: 042
     Dates: start: 20030207, end: 20030224
  4. GENTAMICIN [Suspect]
     Route: 042
     Dates: start: 20030207, end: 20030224
  5. TEMESTA [Suspect]
     Dosage: 1MG PER DAY
     Route: 048
     Dates: start: 20030208, end: 20030224
  6. TRIATEC [Suspect]
     Route: 048
     Dates: start: 20030208, end: 20030224
  7. ALDACTONE [Suspect]
     Route: 048
     Dates: start: 20030208, end: 20030224
  8. SINTROM [Suspect]
     Route: 048
     Dates: start: 20030208, end: 20030224
  9. RULID [Concomitant]
     Dosage: 150MG TWICE PER DAY
     Route: 048
     Dates: start: 20030130, end: 20030206
  10. CORDARONE [Concomitant]
     Dosage: 6UNIT PER DAY
     Route: 048
     Dates: start: 20030207, end: 20030218
  11. MOPRAL [Concomitant]
     Dosage: 20MG PER DAY
     Route: 048
     Dates: start: 20030208
  12. CALCIPARINE [Concomitant]
     Dosage: .35ML THREE TIMES PER DAY
     Route: 058
     Dates: start: 20030218, end: 20030315
  13. COLCHIMAX [Concomitant]
     Indication: ARTHRALGIA
     Route: 065
     Dates: start: 20030115, end: 20030125
  14. CYCLADOL [Concomitant]
     Indication: ARTHRALGIA
     Route: 065
     Dates: start: 20030115, end: 20030125
  15. PROPOFAN [Concomitant]
     Indication: ARTHRALGIA
     Route: 065
     Dates: start: 20030115, end: 20030125
  16. SYMBICORT [Concomitant]
     Route: 065
     Dates: start: 20030130, end: 20030203
  17. OXEOL [Concomitant]
     Route: 065
     Dates: start: 20030128, end: 20030206
  18. FUROSEMIDE [Concomitant]
     Route: 065
     Dates: start: 20030128, end: 20030206
  19. ASPEGIC 1000 [Concomitant]
     Dosage: 100MG PER DAY
     Route: 048
     Dates: start: 20030207, end: 20030313

REACTIONS (14)
  - CHILLS [None]
  - DRUG RASH WITH EOSINOPHILIA AND SYSTEMIC SYMPTOMS [None]
  - EOSINOPHILIA [None]
  - LEUKOPENIA [None]
  - LYMPHADENOPATHY [None]
  - MUSCLE HAEMORRHAGE [None]
  - PLEURAL EFFUSION [None]
  - PYREXIA [None]
  - RASH MACULO-PAPULAR [None]
  - RED BLOOD CELL COUNT DECREASED [None]
  - RENAL FAILURE ACUTE [None]
  - RESPIRATORY DISTRESS [None]
  - SHOCK [None]
  - SKIN EXFOLIATION [None]
